FAERS Safety Report 10170477 (Version 2)
Quarter: 2014Q2

REPORT INFORMATION
  Report Type: Report from Study
  Country: LB (occurrence: LB)
  Receive Date: 20140513
  Receipt Date: 20140607
  Transmission Date: 20141212
  Serious: Yes (Hospitalization)
  Sender: FDA-Public Use
  Company Number: PHHY2014LB057116

PATIENT
  Age: 77 Year
  Sex: Female

DRUGS (6)
  1. ACLASTA [Suspect]
     Dosage: UNK UKN, UNK
     Route: 042
  2. PREDNISONE [Concomitant]
     Dosage: 10 MG, UNK
     Route: 048
  3. CALTRATE [Concomitant]
     Dosage: 2 DF, UNK
     Route: 048
  4. AMARYL [Concomitant]
     Dosage: 1 DF, UNK
     Route: 048
  5. ASPICOT [Concomitant]
     Dosage: 1 DF, UNK
     Route: 048
  6. OROCAL [Concomitant]
     Dosage: 1 DF, UNK
     Route: 048

REACTIONS (1)
  - Pulmonary oedema [Recovered/Resolved]
